FAERS Safety Report 4541079-6 (Version None)
Quarter: 2004Q4

REPORT INFORMATION
  Report Type: 
  Country: None (occurrence: None)
  Receive Date: 20041228
  Receipt Date: 20041213
  Transmission Date: 20050328
  Serious: Yes (Disabling)
  Sender: FDA-Public Use
  Company Number: A01200406330

PATIENT
  Age: 81 Year
  Sex: Female

DRUGS (1)
  1. PLAVIX [Suspect]
     Indication: CEREBROVASCULAR ACCIDENT PROPHYLAXIS
     Dosage: ORAL
     Route: 048
     Dates: start: 20040612, end: 20040901

REACTIONS (2)
  - AGEUSIA [None]
  - ANOSMIA [None]
